FAERS Safety Report 7565788-X (Version None)
Quarter: 2011Q2

REPORT INFORMATION
  Report Type: 
  Country: None (occurrence: None)
  Receive Date: 20110616
  Receipt Date: 20110613
  Transmission Date: 20111010
  Serious: Yes (Death, Life-Threatening, Hospitalization)
  Sender: FDA-Public Use
  Company Number: 2011SP012455

PATIENT
  Age: 80 Year
  Sex: Male

DRUGS (10)
  1. BACTRIM DS [Concomitant]
  2. SIMVASTATIN [Concomitant]
  3. KEPPRA [Concomitant]
  4. ZOFRAN [Concomitant]
  5. FAMOTIDINE [Concomitant]
  6. METFORMIN HCL [Concomitant]
  7. DEXADRON /00016001/ [Concomitant]
  8. LASIX [Concomitant]
  9. TEMODAR [Suspect]
     Indication: GLIOBLASTOMA MULTIFORME
     Dosage: 120 MG; QD; PO
     Route: 048
     Dates: start: 20101228, end: 20110126
  10. QUINAPRIL /00810602/ [Concomitant]

REACTIONS (1)
  - PLATELET COUNT DECREASED [None]
